APPROVED DRUG PRODUCT: EDARBYCLOR
Active Ingredient: AZILSARTAN KAMEDOXOMIL; CHLORTHALIDONE
Strength: EQ 40MG MEDOXOMIL;12.5MG
Dosage Form/Route: TABLET;ORAL
Application: N202331 | Product #001 | TE Code: AB
Applicant: AZURITY PHARMACEUTICALS INC
Approved: Dec 20, 2011 | RLD: Yes | RS: No | Type: RX

PATENTS:
Patent 9387249 | Expires: Jul 1, 2031
Patent 9169238 | Expires: Feb 4, 2030
Patent 9066936 | Expires: Mar 26, 2028